FAERS Safety Report 7789709-X (Version None)
Quarter: 2011Q3

REPORT INFORMATION
  Report Type: 
  Country: None (occurrence: None)
  Receive Date: 20110930
  Receipt Date: 20110927
  Transmission Date: 20111222
  Serious: Yes (Death)
  Sender: FDA-Public Use
  Company Number: AU-PFIZER INC-2011186389

PATIENT
  Sex: Female
  Weight: 45 kg

DRUGS (23)
  1. VFEND [Suspect]
     Dosage: 350 MG, 3X/DAY
     Route: 042
  2. TACROLIMUS [Concomitant]
     Dosage: 3.5 MG, 2X/DAY
  3. CASPOFUNGIN [Concomitant]
     Dosage: 50 MG, 1X/DAY
  4. VFEND [Suspect]
     Dosage: 250 MG, 2X/DAY
     Route: 042
  5. CIPROFLOXACIN [Concomitant]
     Dosage: 750 MG, 2X/DAY
  6. VFEND [Suspect]
     Indication: FUNGAL INFECTION
     Dosage: 200 MG, 2X/DAY
     Route: 042
  7. COLOXYL WITH SENNA [Concomitant]
     Dosage: 2 AT NIGHT
  8. IRON [Concomitant]
     Dosage: 325 MG, 1X/DAY
  9. SALT TABLETS [Concomitant]
     Dosage: 1.8 G, 2X/DAY
  10. AZITHROMYCIN [Concomitant]
     Dosage: 250 MG ON MONDAY, WEDNESDAY AND FRIDAY
  11. VALGANCICLOVIR [Concomitant]
     Dosage: 900 MG, 1X/DAY
  12. AMLODIPINE [Concomitant]
     Dosage: 5 MG, 1X/DAY
  13. OMEPRAZOLE [Concomitant]
     Dosage: 20 MG, 1X/DAY
  14. VFEND [Suspect]
     Dosage: 350 MG, 2X/DAY
     Route: 042
  15. MYCOPHENOLATE MOFETIL [Concomitant]
     Dosage: 1.5 G, 2X/DAY
  16. CREON [Concomitant]
     Dosage: 25000 AT 10 PER DAY
  17. PREDNISOLONE [Concomitant]
     Dosage: 15 MG, 1X/DAY
  18. BACTRIM DS [Concomitant]
     Dosage: ONE EACH MONDAY AND THURSDAY
  19. METOPROLOL [Concomitant]
     Dosage: 50 MG, 2X/DAY
  20. AMINO ACIDS [Concomitant]
     Dosage: ONE EACH MORNING
  21. CALCIUM [Concomitant]
     Dosage: 600 MG, 1X/DAY
  22. MAGNESIUM [Concomitant]
     Dosage: 1 G, 3X/DAY
  23. TERBINAFINE [Concomitant]
     Dosage: 250 MG, 2X/DAY

REACTIONS (2)
  - DRUG LEVEL DECREASED [None]
  - DEATH [None]
